FAERS Safety Report 4439005-3 (Version None)
Quarter: 2004Q3

REPORT INFORMATION
  Report Type: 
  Country: None (occurrence: None)
  Receive Date: 20040830
  Receipt Date: 20040813
  Transmission Date: 20050211
  Serious: Yes (Disabling)
  Sender: FDA-Public Use
  Company Number: JP-2004-029777

PATIENT
  Age: 70 Year
  Sex: Female
  Weight: 52 kg

DRUGS (2)
  1. BETAFERON (INTERFERON BETA-1B) INJECTION, 250 UG [Suspect]
     Indication: MULTIPLE SCLEROSIS
     Dosage: 8 MIU, EVERY 2D, SUBCUTANEOUS
     Route: 058
     Dates: start: 20020610, end: 20040720
  2. ASPIRIN [Concomitant]

REACTIONS (5)
  - DYSLALIA [None]
  - DYSPHASIA [None]
  - HEMIPLEGIA [None]
  - HYPOAESTHESIA [None]
  - THALAMUS HAEMORRHAGE [None]
